FAERS Safety Report 24562965 (Version 3)
Quarter: 2024Q4

REPORT INFORMATION
  Report Type: Report from Study
  Country: KR (occurrence: KR)
  Receive Date: 20241030
  Receipt Date: 20241112
  Transmission Date: 20250115
  Serious: Yes (Other)
  Sender: ABBVIE
  Company Number: KR-ABBVIE-5982878

PATIENT
  Age: 73 Year
  Sex: Male
  Weight: 77 kg

DRUGS (14)
  1. VENCLEXTA [Suspect]
     Active Substance: VENETOCLAX
     Indication: Acute myeloid leukaemia
     Route: 048
     Dates: start: 20231020, end: 20231020
  2. VENCLEXTA [Suspect]
     Active Substance: VENETOCLAX
     Indication: Acute myeloid leukaemia
     Route: 048
     Dates: start: 20231021, end: 20231021
  3. VENCLEXTA [Suspect]
     Active Substance: VENETOCLAX
     Indication: Acute myeloid leukaemia
     Route: 048
     Dates: start: 20231022, end: 20231102
  4. DACOGEN [Concomitant]
     Active Substance: DECITABINE
     Indication: Acute myeloid leukaemia
     Route: 042
     Dates: start: 20231020, end: 20231024
  5. ALLOPURINOL [Concomitant]
     Active Substance: ALLOPURINOL
     Indication: Tumour lysis syndrome
     Dosage: TIME INTERVAL: 0.33333333 DAYS
     Route: 048
     Dates: start: 20231018, end: 20231026
  6. MONTMORILLONITE [Concomitant]
     Active Substance: MONTMORILLONITE
     Indication: Colitis
     Route: 048
     Dates: start: 20231023, end: 20231027
  7. CITOPCIN [Concomitant]
     Indication: Infection prophylaxis
     Route: 048
     Dates: start: 20231026, end: 20231120
  8. Betmira er [Concomitant]
     Indication: Benign prostatic hyperplasia
     Route: 048
     Dates: start: 20231117, end: 20231122
  9. CODIORVAN [Concomitant]
     Indication: Hypertension
     Route: 048
     Dates: start: 20231020, end: 20231122
  10. NOXAFIL [Concomitant]
     Active Substance: POSACONAZOLE
     Indication: Infection
     Route: 048
     Dates: start: 20231111, end: 20231122
  11. MAXIPIME [Concomitant]
     Active Substance: CEFEPIME HYDROCHLORIDE
     Indication: Pyrexia
     Dosage: TIME INTERVAL: 0.33333333 DAYS
     Route: 042
     Dates: start: 20231019, end: 20231026
  12. TEICOCIN [Concomitant]
     Indication: Injection site phlebitis
     Route: 042
     Dates: start: 20231110, end: 20231122
  13. LINAGLIPTIN [Concomitant]
     Active Substance: LINAGLIPTIN
     Indication: Diabetes mellitus
     Route: 048
     Dates: start: 20231020, end: 20231122
  14. HARNAL [Concomitant]
     Active Substance: TAMSULOSIN HYDROCHLORIDE
     Indication: Benign prostatic hyperplasia
     Route: 048
     Dates: start: 20231117, end: 20231122

REACTIONS (1)
  - Acute myeloid leukaemia [Not Recovered/Not Resolved]

NARRATIVE: CASE EVENT DATE: 20231121
